FAERS Safety Report 17960461 (Version 1)
Quarter: 2020Q2

REPORT INFORMATION
  Report Type: Other
  Country: US (occurrence: US)
  Receive Date: 20200630
  Receipt Date: 20200630
  Transmission Date: 20200714
  Serious: No
  Sender: FDA-Public Use
  Company Number: US-BIOVITRUM-2019US1114

PATIENT
  Age: 84 Year
  Sex: Female

DRUGS (5)
  1. KINERET [Suspect]
     Active Substance: ANAKINRA
     Route: 058
     Dates: start: 20190503
  2. MULTIVITAMINS [Concomitant]
     Active Substance: VITAMINS
  3. ALENDRONATE [Concomitant]
     Active Substance: ALENDRONATE SODIUM
  4. KINERET [Suspect]
     Active Substance: ANAKINRA
     Indication: PRODUCT USED FOR UNKNOWN INDICATION
     Route: 058
     Dates: start: 20190509
  5. CALCIUM [Concomitant]
     Active Substance: CALCIUM

REACTIONS (4)
  - Headache [Unknown]
  - Hypertension [Unknown]
  - Product use complaint [Unknown]
  - Diarrhoea [Not Recovered/Not Resolved]

NARRATIVE: CASE EVENT DATE: 20190510
